FAERS Safety Report 5886971-5 (Version None)
Quarter: 2008Q3

REPORT INFORMATION
  Report Type: 
  Country: None (occurrence: None)
  Receive Date: 20080915
  Receipt Date: 20080905
  Transmission Date: 20090109
  Serious: Yes (Other)
  Sender: FDA-Public Use
  Company Number: 2008AP001940

PATIENT
  Age: 78 Year
  Sex: Female

DRUGS (1)
  1. APO-FLUOXETINE (FLUOXETINE HYDROCHLORIDE) [Suspect]
     Indication: ATRIAL FIBRILLATION
     Dosage: PO
     Route: 048
     Dates: start: 20070701

REACTIONS (12)
  - ANOREXIA [None]
  - CATARACT [None]
  - CYST [None]
  - DENTAL CARIES [None]
  - DRY MOUTH [None]
  - DYSMENORRHOEA [None]
  - GASTROINTESTINAL DISORDER [None]
  - HAEMATURIA [None]
  - HOT FLUSH [None]
  - NAUSEA [None]
  - OVARIAN CYST [None]
  - WEIGHT DECREASED [None]
